FAERS Safety Report 10142183 (Version 1)
Quarter: 2014Q2

REPORT INFORMATION
  Report Type: Spontaneous
  Country: US (occurrence: US)
  Receive Date: 20140430
  Receipt Date: 20140430
  Transmission Date: 20141212
  Serious: No
  Sender: FDA-Public Use
  Company Number: US-SANOFI-AVENTIS-2013SA065986

PATIENT
  Sex: Female

DRUGS (4)
  1. CLOMID [Suspect]
     Route: 065
  2. PRENATAL [Concomitant]
     Route: 065
  3. FISH OIL [Concomitant]
     Route: 065
  4. FOLIC ACID [Concomitant]
     Route: 065

REACTIONS (2)
  - Hot flush [Unknown]
  - Emotional disorder [Unknown]
